FAERS Safety Report 12466265 (Version 3)
Quarter: 2016Q4

REPORT INFORMATION
  Report Type: Spontaneous
  Country: GB (occurrence: GB)
  Receive Date: 20160614
  Receipt Date: 20161110
  Transmission Date: 20170207
  Serious: Yes (Other)
  Sender: FDA-Public Use
  Company Number: GB-BEH-2016070111

PATIENT
  Age: 43 Year
  Sex: Female

DRUGS (5)
  1. RHINOLAST [Concomitant]
     Active Substance: AZELASTINE HYDROCHLORIDE
     Indication: SEASONAL ALLERGY
     Dosage: 2 DF, PRN
     Route: 045
  2. FERRITIN [Concomitant]
     Active Substance: FERRITIN
     Route: 048
  3. OMEPRAZOLE. [Concomitant]
     Active Substance: OMEPRAZOLE
     Dosage: 40 MG, OD
     Route: 048
  4. AVAMYS [Concomitant]
     Active Substance: FLUTICASONE FUROATE
     Indication: SEASONAL ALLERGY
     Dosage: 2 DF, OD
     Route: 045
  5. HIZENTRA [Suspect]
     Active Substance: HUMAN IMMUNOGLOBULIN G
     Indication: MULTIFOCAL MOTOR NEUROPATHY
     Dosage: 32 G, QW
     Route: 058
     Dates: start: 20160306

REACTIONS (9)
  - Infusion site scab [Unknown]
  - Injection site necrosis [Recovered/Resolved]
  - Infarction [Unknown]
  - Infusion site erythema [Unknown]
  - Infusion site pallor [Unknown]
  - Infusion site atrophy [Unknown]
  - Infusion site ulcer [Unknown]
  - Hypoperfusion [Unknown]
  - Infusion site scar [Unknown]
